FAERS Safety Report 17646892 (Version 1)
Quarter: 2020Q2

REPORT INFORMATION
  Report Type: Spontaneous
  Country: PL (occurrence: PL)
  Receive Date: 20200408
  Receipt Date: 20200408
  Transmission Date: 20200713
  Serious: Yes (Death, Other)
  Sender: FDA-Public Use
  Company Number: PL-AMGEN-POLSP2020055191

PATIENT
  Age: 61 Year
  Sex: Male

DRUGS (7)
  1. MORPHINE [Suspect]
     Active Substance: MORPHINE
     Indication: PAIN
     Dosage: FAST RELEASE, 0.02 G UP TO 4 TIMES A DAY
     Route: 065
     Dates: start: 201603
  2. BICALUTAMIDE. [Suspect]
     Active Substance: BICALUTAMIDE
     Indication: PROSTATE CANCER
     Dosage: 50 MILLIGRAM, QD
     Route: 065
     Dates: start: 201603
  3. FENTANYL. [Suspect]
     Active Substance: FENTANYL
     Indication: PAIN
     Dosage: UNK, 50 MICROG / H EVERY 3 DAYS, INCREASED EVERY 6-9 DAYS
     Route: 065
     Dates: start: 201603
  4. GABAPENTIN. [Suspect]
     Active Substance: GABAPENTIN
     Indication: PAIN
     Dosage: UNK, 0.3 G, 1-1-1
     Route: 065
     Dates: start: 201603, end: 2016
  5. XGEVA [Suspect]
     Active Substance: DENOSUMAB
     Indication: PROSTATE CANCER
     Dosage: 120 MILLIGRAM
     Route: 058
     Dates: start: 201603
  6. KETOPROFEN. [Suspect]
     Active Substance: KETOPROFEN
     Indication: PAIN
     Dosage: 100 MILLIGRAM, 2 TIMES 100 MG
     Route: 065
     Dates: start: 201603
  7. VITAMIN D3 [Concomitant]
     Active Substance: CHOLECALCIFEROL
     Dosage: 4000 INTERNATIONAL UNIT, QD
     Dates: start: 201603

REACTIONS (9)
  - Pulmonary embolism [Fatal]
  - Pain [Unknown]
  - Decreased appetite [Unknown]
  - Arthralgia [Unknown]
  - Quality of life decreased [Unknown]
  - Spinal pain [Unknown]
  - Confusional state [Recovered/Resolved]
  - Constipation [Unknown]
  - Pelvic pain [Unknown]

NARRATIVE: CASE EVENT DATE: 2016
